FAERS Safety Report 5428171-9 (Version None)
Quarter: 2007Q3

REPORT INFORMATION
  Report Type: 
  Country: None (occurrence: None)
  Receive Date: 20070828
  Receipt Date: 20070816
  Transmission Date: 20080115
  Serious: Yes (Other)
  Sender: FDA-Public Use
  Company Number: US-PFIZER INC-2007068928

PATIENT
  Sex: Female
  Weight: 60.454 kg

DRUGS (2)
  1. LYRICA [Suspect]
     Indication: TRIGEMINAL NEURALGIA
     Route: 048
     Dates: start: 20070801, end: 20070801
  2. MULTIVITAMIN [Concomitant]

REACTIONS (7)
  - ACTIVITIES OF DAILY LIVING IMPAIRED [None]
  - FATIGUE [None]
  - HEARING IMPAIRED [None]
  - IMPAIRED WORK ABILITY [None]
  - LETHARGY [None]
  - PAIN [None]
  - SOMNOLENCE [None]
